FAERS Safety Report 10049375 (Version 3)
Quarter: 2014Q2

REPORT INFORMATION
  Report Type: Spontaneous
  Country: KR (occurrence: KR)
  Receive Date: 20140401
  Receipt Date: 20140414
  Transmission Date: 20141212
  Serious: Yes (Hospitalization)
  Sender: FDA-Public Use
  Company Number: KR-009507513-1403KOR011877

PATIENT
  Age: 39 Year
  Sex: Male
  Weight: 69.7 kg

DRUGS (2)
  1. BRIDION [Suspect]
     Indication: NEUROMUSCULAR BLOCKADE REVERSAL
     Dosage: 2 MG/KG, ONCE(139.4 MG)
     Route: 042
     Dates: start: 20140210
  2. ROCURONIUM BROMIDE [Concomitant]
     Indication: INDUCTION OF ANAESTHESIA
     Dosage: 50 ML, ONCE
     Route: 042
     Dates: start: 20140210

REACTIONS (1)
  - Hypocalcaemia [Recovered/Resolved]
